FAERS Safety Report 6710681-5 (Version None)
Quarter: 2010Q2

REPORT INFORMATION
  Report Type: 
  Country: None (occurrence: None)
  Receive Date: 20100504
  Receipt Date: 20100504
  Transmission Date: 20101027
  Serious: Yes (Other)
  Sender: FDA-Public Use
  Company Number: None

PATIENT
  Age: 39 Year
  Sex: Female
  Weight: 107.9561 kg

DRUGS (1)
  1. TRILEPTAL [Suspect]
     Indication: BIPOLAR DISORDER
     Dosage: ONE TABLET TWICE DAILY PO, STILL ON DRUG
     Route: 048
     Dates: start: 20100318, end: 20100430

REACTIONS (9)
  - ABDOMINAL PAIN UPPER [None]
  - CONDITION AGGRAVATED [None]
  - DIARRHOEA [None]
  - EYE MOVEMENT DISORDER [None]
  - HALLUCINATIONS, MIXED [None]
  - MOVEMENT DISORDER [None]
  - SUICIDAL IDEATION [None]
  - VIOLENCE-RELATED SYMPTOM [None]
  - VISUAL IMPAIRMENT [None]
